FAERS Safety Report 13734452 (Version 2)
Quarter: 2017Q3

REPORT INFORMATION
  Report Type: Report from Study
  Country: US (occurrence: US)
  Receive Date: 20170709
  Receipt Date: 20170922
  Transmission Date: 20171127
  Serious: Yes (Other)
  Sender: FDA-Public Use
  Company Number: US-ALEXION-A201707313

PATIENT
  Age: 67 Year
  Sex: Female

DRUGS (2)
  1. SOLIRIS [Suspect]
     Active Substance: ECULIZUMAB
     Dosage: 1200 MG, Q12D
     Route: 042
     Dates: start: 20170626, end: 20170707
  2. SOLIRIS [Suspect]
     Active Substance: ECULIZUMAB
     Indication: HAEMOLYTIC URAEMIC SYNDROME
     Dosage: UNK UNK, Q2W
     Route: 042
     Dates: start: 20131023, end: 20170530

REACTIONS (9)
  - Cerebrovascular accident [Unknown]
  - Condition aggravated [Not Recovered/Not Resolved]
  - Visual impairment [Not Recovered/Not Resolved]
  - Haemolytic uraemic syndrome [Not Recovered/Not Resolved]
  - Incontinence [Not Recovered/Not Resolved]
  - Amnesia [Not Recovered/Not Resolved]
  - Genital swelling [Not Recovered/Not Resolved]
  - Fatigue [Not Recovered/Not Resolved]
  - Vascular dementia [Unknown]

NARRATIVE: CASE EVENT DATE: 20170501
